FAERS Safety Report 17256289 (Version 2)
Quarter: 2020Q1

REPORT INFORMATION
  Report Type: Spontaneous
  Country: US (occurrence: US)
  Receive Date: 20200110
  Receipt Date: 20200310
  Transmission Date: 20200409
  Serious: Yes (Other)
  Sender: FDA-Public Use
  Company Number: US-GLAXOSMITHKLINE-US2020GSK002111

PATIENT
  Age: 35 Year
  Sex: Female

DRUGS (12)
  1. AMBRISENTAN [Concomitant]
     Active Substance: AMBRISENTAN
     Indication: DYSPNOEA
  2. SILDENAFIL. [Concomitant]
     Active Substance: SILDENAFIL
     Indication: SYNCOPE
  3. EPOPROSTENOL. [Suspect]
     Active Substance: EPOPROSTENOL
     Indication: PULMONARY ARTERIAL HYPERTENSION
     Dosage: UNK
     Route: 042
     Dates: start: 2010
  4. TREPROSTINIL. [Concomitant]
     Active Substance: TREPROSTINIL
     Indication: DYSPNOEA
  5. AMBRISENTAN [Concomitant]
     Active Substance: AMBRISENTAN
     Indication: SYNCOPE
  6. TREPROSTINIL. [Concomitant]
     Active Substance: TREPROSTINIL
     Indication: PULMONARY ARTERIAL HYPERTENSION
     Dosage: UNK
     Route: 055
     Dates: start: 2010
  7. EPOPROSTENOL. [Suspect]
     Active Substance: EPOPROSTENOL
     Indication: SYNCOPE
  8. AMBRISENTAN [Concomitant]
     Active Substance: AMBRISENTAN
     Indication: PULMONARY ARTERIAL HYPERTENSION
     Dosage: 10 MG, DAILY
     Dates: start: 2010
  9. SILDENAFIL. [Concomitant]
     Active Substance: SILDENAFIL
     Indication: DYSPNOEA
  10. TREPROSTINIL. [Concomitant]
     Active Substance: TREPROSTINIL
     Indication: SYNCOPE
  11. EPOPROSTENOL. [Suspect]
     Active Substance: EPOPROSTENOL
     Indication: DYSPNOEA
     Dosage: 48 NG/KG/ /MIN
     Route: 042
     Dates: start: 2018
  12. SILDENAFIL. [Concomitant]
     Active Substance: SILDENAFIL
     Indication: PULMONARY ARTERIAL HYPERTENSION
     Dosage: UNK
     Dates: start: 2010, end: 2015

REACTIONS (11)
  - Dysphonia [Recovered/Resolved]
  - Systolic dysfunction [Unknown]
  - Neck pain [Recovered/Resolved]
  - Hyperthyroidism [Recovered/Resolved]
  - Dyspnoea [Recovered/Resolved]
  - Toxic nodular goitre [Recovered/Resolved]
  - Silent thyroiditis [Recovered/Resolved]
  - Right ventricular enlargement [Unknown]
  - Swelling [Recovered/Resolved]
  - Dysphagia [Recovered/Resolved]
  - Goitre [Recovered/Resolved]
